FAERS Safety Report 8981508 (Version 1)
Quarter: 2012Q4

REPORT INFORMATION
  Report Type: 
  Country: DE (occurrence: DE)
  Receive Date: 20121221
  Receipt Date: 20121221
  Transmission Date: 20130627
  Serious: Yes (Other)
  Sender: FDA-Public Use
  Company Number: DE-SANOFI-AVENTIS-2012SA093564

PATIENT
  Age: 34 Year
  Sex: Female

DRUGS (6)
  1. CLEXANE [Suspect]
     Indication: FACTOR V DEFICIENCY
     Route: 058
     Dates: start: 20121217, end: 20121217
  2. CLEXANE [Suspect]
     Indication: PREGNANCY
     Route: 058
     Dates: start: 20121217, end: 20121217
  3. CLEXANE [Suspect]
     Indication: PROPHYLAXIS
     Route: 058
     Dates: start: 20121217, end: 20121217
  4. CLEXANE [Suspect]
     Indication: FACTOR V DEFICIENCY
     Route: 058
  5. CLEXANE [Suspect]
     Indication: PREGNANCY
     Route: 058
  6. CLEXANE [Suspect]
     Indication: PROPHYLAXIS
     Route: 058

REACTIONS (1)
  - Abscess [Not Recovered/Not Resolved]
